FAERS Safety Report 23793707 (Version 1)
Quarter: 2024Q2

REPORT INFORMATION
  Report Type: Spontaneous
  Country: US (occurrence: None)
  Receive Date: 20240426
  Receipt Date: 20240426
  Transmission Date: 20240716
  Serious: Yes (Other)
  Sender: FDA-Public Use
  Company Number: None

PATIENT
  Age: 72 Year
  Sex: Female

DRUGS (1)
  1. HUMIRA [Suspect]
     Active Substance: ADALIMUMAB
     Indication: Rheumatoid arthritis
     Dosage: 40MG QOW ?

REACTIONS (5)
  - Therapy interrupted [None]
  - Non-alcoholic steatohepatitis [None]
  - Takayasu^s arteritis [None]
  - Arteriosclerosis [None]
  - Pain [None]
